FAERS Safety Report 10058387 (Version 1)
Quarter: 2014Q2

REPORT INFORMATION
  Report Type: Spontaneous
  Country: FR (occurrence: FR)
  Receive Date: 20140404
  Receipt Date: 20140404
  Transmission Date: 20141212
  Serious: Yes (Hospitalization)
  Sender: FDA-Public Use
  Company Number: FR-009507513-1403FRA012144

PATIENT
  Age: 60 Year
  Sex: Female

DRUGS (8)
  1. STROMECTOL [Suspect]
     Indication: ACARODERMATITIS
     Dosage: 4 DF, ONCE
     Route: 048
     Dates: start: 20140210, end: 20140210
  2. STROMECTOL [Suspect]
     Dosage: 4 DF, ONCE
     Route: 048
     Dates: start: 20140224, end: 20140224
  3. VANCOMYCIN [Suspect]
     Dosage: 1.5 G, QD
     Route: 041
     Dates: start: 20140211, end: 20140303
  4. CEFTRIAXONE SODIUM [Suspect]
     Dosage: 2 G, QD
     Dates: start: 20140212, end: 20140303
  5. OXYCODONE HYDROCHLORIDE [Suspect]
     Dosage: 2 DF, ONCE
     Route: 048
     Dates: start: 20140212, end: 20140212
  6. OXYCODONE HYDROCHLORIDE [Suspect]
     Dosage: 1 DF, ONCE
     Route: 048
     Dates: start: 20140226, end: 20140226
  7. ZAMUDOL [Suspect]
     Dosage: 2 DF, BID
     Route: 048
     Dates: start: 20140212, end: 20140224
  8. FUNGIZONE [Suspect]
     Dosage: UNK
     Route: 048
     Dates: start: 20140212, end: 20140304

REACTIONS (1)
  - Agranulocytosis [Recovered/Resolved]
